FAERS Safety Report 13402720 (Version 2)
Quarter: 2019Q2

REPORT INFORMATION
  Report Type: Spontaneous
  Country: JP (occurrence: JP)
  Receive Date: 20170404
  Receipt Date: 20190509
  Transmission Date: 20190711
  Serious: Yes (Life-Threatening, Hospitalization, Other)
  Sender: FDA-Public Use
  Company Number: PHJP2017JP010190

PATIENT
  Age: 65 Year
  Sex: Female

DRUGS (6)
  1. LEVODOPA [Concomitant]
     Active Substance: LEVODOPA
     Dosage: 600 MG, UNK
     Route: 065
  2. ROTIGOTINE [Concomitant]
     Active Substance: ROTIGOTINE
     Indication: PARKINSONISM
     Dosage: UNK
     Route: 062
  3. SYMMETREL [Suspect]
     Active Substance: AMANTADINE HYDROCHLORIDE
     Indication: PARKINSONISM
     Dosage: 200 MG, UNK
     Route: 048
  4. PRAMIPEXOLE. [Concomitant]
     Active Substance: PRAMIPEXOLE
     Indication: PARKINSONISM
     Dosage: 1.5 MG, UNK
     Route: 048
  5. LEVODOPA [Concomitant]
     Active Substance: LEVODOPA
     Indication: PARKINSONISM
     Dosage: 300 MG, UNK
     Route: 065
  6. DROXIDOPA [Concomitant]
     Active Substance: DROXIDOPA
     Indication: PARKINSONISM
     Dosage: 300 MG, UNK
     Route: 048

REACTIONS (12)
  - Pyelonephritis [Unknown]
  - Parkinsonism [Unknown]
  - Tremor [Unknown]
  - Neuroleptic malignant syndrome [Recovering/Resolving]
  - Sepsis [Unknown]
  - Pyrexia [Recovering/Resolving]
  - White blood cells urine positive [Recovering/Resolving]
  - Pyelocaliectasis [Unknown]
  - Acute kidney injury [Unknown]
  - Cardio-respiratory arrest [Unknown]
  - Concomitant disease aggravated [Unknown]
  - Hyperkalaemia [Recovering/Resolving]
